FAERS Safety Report 14626021 (Version 1)
Quarter: 2018Q1

REPORT INFORMATION
  Report Type: Spontaneous
  Country: AU (occurrence: AU)
  Receive Date: 20180312
  Receipt Date: 20180312
  Transmission Date: 20180509
  Serious: Yes (Death, Other)
  Sender: FDA-Public Use
  Company Number: AU-NAPPMUNDI-GBR-2018-0053754

PATIENT
  Age: 38 Year
  Sex: Female
  Weight: 100 kg

DRUGS (13)
  1. OXYCODONE HYDROCHLORIDE. [Suspect]
     Active Substance: OXYCODONE HYDROCHLORIDE
     Indication: PRODUCT USED FOR UNKNOWN INDICATION
     Dosage: 30 MG, DAILY
     Route: 065
  2. CANDESARTAN. [Concomitant]
     Active Substance: CANDESARTAN
  3. PRAMIPEXOLE. [Concomitant]
     Active Substance: PRAMIPEXOLE
  4. RIZATRIPTAN. [Concomitant]
     Active Substance: RIZATRIPTAN
  5. AMITRIPTYLINE [Concomitant]
     Active Substance: AMITRIPTYLINE
  6. OXYNORM [Suspect]
     Active Substance: OXYCODONE HYDROCHLORIDE
     Indication: PRODUCT USED FOR UNKNOWN INDICATION
     Route: 065
  7. QUETIAPINE. [Concomitant]
     Active Substance: QUETIAPINE
  8. CHAMPIX [Concomitant]
     Active Substance: VARENICLINE TARTRATE
  9. DULOXETINE. [Concomitant]
     Active Substance: DULOXETINE
  10. MEBEVERINE [Concomitant]
     Active Substance: MEBEVERINE
  11. NIZATIDINE. [Concomitant]
     Active Substance: NIZATIDINE
  12. TRAMADOL. [Concomitant]
     Active Substance: TRAMADOL
  13. PREGABALIN. [Concomitant]
     Active Substance: PREGABALIN

REACTIONS (4)
  - Aspiration [Fatal]
  - Acute kidney injury [Fatal]
  - Drug dependence [Unknown]
  - Brain injury [Fatal]

NARRATIVE: CASE EVENT DATE: 20161207
